FAERS Safety Report 25827996 (Version 1)
Quarter: 2025Q3

REPORT INFORMATION
  Report Type: Spontaneous
  Country: TH (occurrence: TH)
  Receive Date: 20250921
  Receipt Date: 20250921
  Transmission Date: 20251021
  Serious: Yes (Death, Other)
  Sender: MERCK SHARP & DOHME LLC
  Company Number: TH-009507513-2331344

PATIENT
  Age: 28 Year
  Sex: Male

DRUGS (3)
  1. KEYTRUDA [Suspect]
     Active Substance: PEMBROLIZUMAB
     Indication: Lung squamous cell carcinoma metastatic
     Route: 065
     Dates: start: 20221011
  2. CARBOPLATIN [Suspect]
     Active Substance: CARBOPLATIN
     Indication: Lung squamous cell carcinoma metastatic
     Route: 065
     Dates: start: 20221011
  3. PACLITAXEL [Suspect]
     Active Substance: PACLITAXEL
     Indication: Lung squamous cell carcinoma metastatic
     Route: 065
     Dates: start: 20221011

REACTIONS (8)
  - Death [Fatal]
  - Malignant neoplasm progression [Unknown]
  - Alopecia [Unknown]
  - Brain herniation [Unknown]
  - Low density lipoprotein increased [Unknown]
  - Immune-mediated mucositis [Unknown]
  - Therapy partial responder [Unknown]
  - Brain oedema [Unknown]

NARRATIVE: CASE EVENT DATE: 20220101
